FAERS Safety Report 25675419 (Version 1)
Quarter: 2025Q3

REPORT INFORMATION
  Report Type: Spontaneous
  Country: TW (occurrence: TW)
  Receive Date: 20250813
  Receipt Date: 20250813
  Transmission Date: 20251020
  Serious: Yes (Life-Threatening, Hospitalization)
  Sender: ACCORD
  Company Number: TW-Accord-498905

PATIENT
  Age: 73 Year
  Sex: Male
  Weight: 62 kg

DRUGS (43)
  1. CARBOPLATIN [Suspect]
     Active Substance: CARBOPLATIN
     Indication: Non-small cell lung cancer stage IV
     Dosage: 416.4 AUC-5, Q3W
     Route: 042
     Dates: start: 20250430, end: 20250430
  2. PEMETREXED [Suspect]
     Active Substance: PEMETREXED
     Indication: Non-small cell lung cancer stage IV
     Dosage: Q3W
     Route: 042
     Dates: start: 20250430, end: 20250430
  3. PEMBROLIZUMAB [Concomitant]
     Active Substance: PEMBROLIZUMAB
     Indication: Non-small cell lung cancer stage IV
     Dosage: Q3W
     Route: 042
     Dates: start: 20250430, end: 20250430
  4. ASPIRIN [Concomitant]
     Active Substance: ASPIRIN
     Dates: start: 20090301
  5. DILTIAZEM [Concomitant]
     Active Substance: DILTIAZEM
     Dates: start: 20090921
  6. ATORVASTATIN [Concomitant]
     Active Substance: ATORVASTATIN
     Dates: start: 20110614
  7. BISOPROLOL [Concomitant]
     Active Substance: BISOPROLOL
     Dates: start: 20110624
  8. NICORANDIL [Concomitant]
     Active Substance: NICORANDIL
     Dates: start: 20131018
  9. DIMETHICONE [Concomitant]
     Active Substance: DIMETHICONE
     Dates: start: 20180824
  10. VALSARTAN [Concomitant]
     Active Substance: VALSARTAN
     Dates: start: 20180824
  11. CILOSTAZOL [Concomitant]
     Active Substance: CILOSTAZOL
     Dates: start: 20181214
  12. ACETAMINOPHEN [Concomitant]
     Active Substance: ACETAMINOPHEN
     Dates: start: 20230801
  13. DOXEPIN HYDROCHLORIDE [Concomitant]
     Active Substance: DOXEPIN HYDROCHLORIDE
     Dates: start: 20250411
  14. TENOFOVIR ALAFENAMIDE FUMARATE [Concomitant]
     Active Substance: TENOFOVIR ALAFENAMIDE FUMARATE
     Dates: start: 20250415
  15. FOLIC ACID [Concomitant]
     Active Substance: FOLIC ACID
     Dates: start: 20250417
  16. METHYLCOBALAMIN [Concomitant]
     Active Substance: METHYLCOBALAMIN
     Dates: start: 20250417
  17. DEXTROMETHORPHAN [Concomitant]
     Active Substance: DEXTROMETHORPHAN
     Dates: start: 20250624
  18. GLYCYRRHIZA GLABRA EXTRACT [Concomitant]
     Dates: start: 20250624
  19. BETAMETHASONE [Concomitant]
     Active Substance: BETAMETHASONE
     Dates: start: 20250624
  20. BENZONATATE [Concomitant]
     Active Substance: BENZONATATE
     Dates: start: 20250627
  21. AMBROXOL [Concomitant]
     Active Substance: AMBROXOL
     Dates: start: 20250627
  22. FILGRASTIM [Concomitant]
     Active Substance: FILGRASTIM
     Dates: start: 20250702, end: 20250709
  23. CHLORHEXIDINE [Concomitant]
     Active Substance: CHLORHEXIDINE
     Dates: start: 20250704
  24. GENTAMICIN [Concomitant]
     Active Substance: GENTAMICIN
     Dates: start: 20250704, end: 20250710
  25. MICONAZOLE [Concomitant]
     Active Substance: MICONAZOLE
     Dates: start: 20250709
  26. HUMAN RED BLOOD CELL [Concomitant]
     Active Substance: HUMAN RED BLOOD CELL
     Dates: start: 20250709, end: 20250709
  27. LEVOCETIRIZINE [Concomitant]
     Active Substance: LEVOCETIRIZINE
     Dates: start: 20250709
  28. CLOBETASOL [Concomitant]
     Active Substance: CLOBETASOL
     Dates: start: 20250709
  29. HYDROXYZINE [Concomitant]
     Active Substance: HYDROXYZINE HYDROCHLORIDE
     Dates: start: 20250709
  30. CEFEPIME [Concomitant]
     Active Substance: CEFEPIME HYDROCHLORIDE
     Dates: start: 20250709, end: 20250713
  31. CEFTRIAXONE [Concomitant]
     Active Substance: CEFTRIAXONE
     Dates: start: 20250709, end: 20250709
  32. BACITRACIN W/NEOMYCIN/POLYMIXIN [Concomitant]
     Dates: start: 20250711
  33. SENNOSIDES [Concomitant]
     Active Substance: SENNOSIDES
     Dates: start: 20250711
  34. ACETAMINOPHEN\TRAMADOL [Concomitant]
     Active Substance: ACETAMINOPHEN\TRAMADOL
     Dates: start: 20250711
  35. PHENYLEPHRINE W/TROPICAMIDE [Concomitant]
     Dates: start: 20250711
  36. POTASSIUM GLUCONATE [Concomitant]
     Active Substance: POTASSIUM GLUCONATE
     Dates: start: 20250712
  37. LACTULOSE [Concomitant]
     Active Substance: LACTULOSE
     Dates: start: 20250712
  38. MAGNESIUM SULFATE [Concomitant]
     Active Substance: MAGNESIUM SULFATE
     Dates: start: 20250712, end: 20250712
  39. QUETIAPINE [Concomitant]
     Active Substance: QUETIAPINE
     Dates: start: 20250712
  40. VALPROATE [Concomitant]
     Active Substance: VALPROIC ACID
     Dates: start: 20250715
  41. CARBOPLATIN [Suspect]
     Active Substance: CARBOPLATIN
     Indication: Non-small cell lung cancer stage IV
     Dosage: UNK, Q3W
     Route: 042
     Dates: start: 20250723, end: 20250723
  42. PEMETREXED [Suspect]
     Active Substance: PEMETREXED
     Indication: Non-small cell lung cancer stage IV
     Dosage: Q3W
     Route: 042
     Dates: start: 20250723, end: 20250723
  43. PEMBROLIZUMAB [Concomitant]
     Active Substance: PEMBROLIZUMAB
     Indication: Non-small cell lung cancer stage IV
     Dosage: Q3W
     Route: 042
     Dates: start: 20250723, end: 20250723

REACTIONS (1)
  - Pneumonia [Not Recovered/Not Resolved]

NARRATIVE: CASE EVENT DATE: 20250725
